FAERS Safety Report 7355396-8 (Version None)
Quarter: 2011Q1

REPORT INFORMATION
  Report Type: 
  Country: None (occurrence: None)
  Receive Date: 20110316
  Receipt Date: 20110307
  Transmission Date: 20110831
  Serious: Yes (Disabling)
  Sender: FDA-Public Use
  Company Number: US-SHIRE-ALL1-2011-00173

PATIENT
  Sex: Female
  Weight: 40.544 kg

DRUGS (1)
  1. VYVANSE [Suspect]
     Indication: ATTENTION DEFICIT/HYPERACTIVITY DISORDER
     Dosage: 40 MG, 1X/DAY:QD IN AM
     Route: 048
     Dates: start: 20100113, end: 20101201

REACTIONS (3)
  - CONDITION AGGRAVATED [None]
  - SCLERODERMA [None]
  - RAYNAUD'S PHENOMENON [None]
